FAERS Safety Report 16534948 (Version 1)
Quarter: 2019Q3

REPORT INFORMATION
  Report Type: Spontaneous
  Country: PT (occurrence: PT)
  Receive Date: 20190705
  Receipt Date: 20190705
  Transmission Date: 20191004
  Serious: Yes (Other)
  Sender: FDA-Public Use
  Company Number: PT-AMGEN-PRTSP2019105195

PATIENT
  Age: 60 Year
  Sex: Male

DRUGS (24)
  1. 5-FU [FLUOROURACIL] [Concomitant]
     Active Substance: FLUOROURACIL
     Indication: METASTASES TO LIVER
  2. IRINOTECAN [Concomitant]
     Active Substance: IRINOTECAN
     Indication: METASTASES TO LIVER
  3. VECTIBIX [Suspect]
     Active Substance: PANITUMUMAB
     Indication: METASTASES TO LUNG
     Dosage: UNK UNK, CYCLICAL
     Route: 065
     Dates: start: 201412
  4. VECTIBIX [Suspect]
     Active Substance: PANITUMUMAB
     Indication: METASTASES TO ADRENALS
     Dosage: UNK UNK, CYCLICAL
     Route: 065
     Dates: start: 201604
  5. VECTIBIX [Suspect]
     Active Substance: PANITUMUMAB
     Dosage: UNK
     Route: 065
     Dates: start: 201708
  6. VECTIBIX [Suspect]
     Active Substance: PANITUMUMAB
     Dosage: UNK UNK, CYCLICAL (50 PERCENT DOSE REDUCTION AS A MONOTHERAPY)
     Route: 065
     Dates: start: 201809
  7. VECTIBIX [Suspect]
     Active Substance: PANITUMUMAB
     Indication: METASTASES TO LIVER
     Dosage: UNK UNK, CYCLICAL
     Route: 065
     Dates: start: 201504
  8. FOLINIC ACID [Concomitant]
     Active Substance: LEUCOVORIN
     Indication: METASTASES TO LUNG
  9. FOLINIC ACID [Concomitant]
     Active Substance: LEUCOVORIN
     Indication: METASTASES TO ADRENALS
  10. 5-FU [FLUOROURACIL] [Concomitant]
     Active Substance: FLUOROURACIL
     Indication: RECTOSIGMOID CANCER METASTATIC
     Dosage: UNK UNK, CYCLICAL
     Dates: start: 201408
  11. OXALIPLATIN. [Concomitant]
     Active Substance: OXALIPLATIN
     Indication: METASTASES TO ADRENALS
  12. IRINOTECAN [Concomitant]
     Active Substance: IRINOTECAN
     Indication: RECTOSIGMOID CANCER METASTATIC
     Dosage: UNK UNK, CYCLICAL
     Dates: start: 201509
  13. IRINOTECAN [Concomitant]
     Active Substance: IRINOTECAN
     Indication: METASTASES TO ADRENALS
  14. VECTIBIX [Suspect]
     Active Substance: PANITUMUMAB
     Indication: RECTOSIGMOID CANCER METASTATIC
     Dosage: UNK UNK, CYCLICAL
     Route: 065
     Dates: start: 201408, end: 2014
  15. VECTIBIX [Suspect]
     Active Substance: PANITUMUMAB
     Dosage: UNK UNK, CYCLICAL (50 PERCENT DOSE REDUCTION)
     Route: 065
     Dates: start: 201801, end: 201806
  16. OXALIPLATIN. [Concomitant]
     Active Substance: OXALIPLATIN
     Indication: METASTASES TO LUNG
  17. IRINOTECAN [Concomitant]
     Active Substance: IRINOTECAN
     Indication: METASTASES TO LUNG
  18. VECTIBIX [Suspect]
     Active Substance: PANITUMUMAB
     Dosage: UNK UNK, CYCLICAL (50 PERCENT DOSE REDUCTION)
     Route: 065
     Dates: start: 201611
  19. FOLINIC ACID [Concomitant]
     Active Substance: LEUCOVORIN
     Indication: RECTOSIGMOID CANCER METASTATIC
     Dosage: UNK UNK, CYCLICAL
     Dates: start: 201408
  20. FOLINIC ACID [Concomitant]
     Active Substance: LEUCOVORIN
     Indication: METASTASES TO LIVER
  21. 5-FU [FLUOROURACIL] [Concomitant]
     Active Substance: FLUOROURACIL
     Indication: METASTASES TO LUNG
  22. 5-FU [FLUOROURACIL] [Concomitant]
     Active Substance: FLUOROURACIL
     Indication: METASTASES TO ADRENALS
  23. OXALIPLATIN. [Concomitant]
     Active Substance: OXALIPLATIN
     Indication: RECTOSIGMOID CANCER METASTATIC
     Dosage: UNK UNK, CYCLICAL
     Dates: start: 201408, end: 2015
  24. OXALIPLATIN. [Concomitant]
     Active Substance: OXALIPLATIN
     Indication: METASTASES TO LIVER

REACTIONS (5)
  - Neutropenia [Unknown]
  - Polyneuropathy [Unknown]
  - Asthenia [Unknown]
  - Diarrhoea [Unknown]
  - Rash [Unknown]

NARRATIVE: CASE EVENT DATE: 201408
